FAERS Safety Report 4810937-7 (Version None)
Quarter: 2005Q4

REPORT INFORMATION
  Report Type: 
  Country: None (occurrence: None)
  Receive Date: 20051025
  Receipt Date: 20051012
  Transmission Date: 20060501
  Serious: Yes (Other)
  Sender: FDA-Public Use
  Company Number: 2005141756

PATIENT
  Age: 58 Year
  Sex: Female
  Weight: 91.173 kg

DRUGS (11)
  1. CELEBREX [Suspect]
     Indication: ARTHRALGIA
     Dosage: 400 MG (200 MG, 2 IN 1 D), ORAL
     Route: 048
  2. PREDNISONE [Suspect]
     Indication: RHEUMATOID ARTHRITIS
  3. NAPROXEN [Suspect]
     Indication: ILL-DEFINED DISORDER
  4. REMICADE [Concomitant]
  5. PLAQUENIL [Concomitant]
  6. ARAVA [Concomitant]
  7. GLUCOTROL XL [Concomitant]
  8. ACTOS [Concomitant]
  9. ZOLOFT [Concomitant]
  10. CYMBALTA [Concomitant]
  11. OXYCONTIN [Concomitant]

REACTIONS (14)
  - BLOOD CHOLESTEROL INCREASED [None]
  - BONE DENSITY DECREASED [None]
  - BRONCHITIS [None]
  - CARDIAC FAILURE CONGESTIVE [None]
  - CONTUSION [None]
  - COUGH [None]
  - DYSPNOEA [None]
  - FALL [None]
  - HEADACHE [None]
  - LOW DENSITY LIPOPROTEIN INCREASED [None]
  - MENISCUS LESION [None]
  - MIGRAINE [None]
  - PAIN [None]
  - ROTATOR CUFF SYNDROME [None]
